FAERS Safety Report 24466799 (Version 1)
Quarter: 2024Q4

REPORT INFORMATION
  Report Type: Report from Study
  Country: US (occurrence: US)
  Receive Date: 20241018
  Receipt Date: 20241018
  Transmission Date: 20250114
  Serious: No
  Sender: ROCHE
  Company Number: US-ROCHE-3551806

PATIENT
  Age: 28 Year
  Sex: Female

DRUGS (20)
  1. XOLAIR [Suspect]
     Active Substance: OMALIZUMAB
     Indication: Asthma
     Route: 058
  2. XOLAIR [Suspect]
     Active Substance: OMALIZUMAB
  3. PHENERGAN [Concomitant]
     Active Substance: PROMETHAZINE HYDROCHLORIDE
  4. BUSPAR [Concomitant]
     Active Substance: BUSPIRONE HYDROCHLORIDE
  5. ALBUTEROL [Concomitant]
     Active Substance: ALBUTEROL
  6. SINGULAIR [Concomitant]
     Active Substance: MONTELUKAST SODIUM
  7. THERMAZENE [Concomitant]
     Active Substance: SILVER SULFADIAZINE
  8. ZANAFLEX [Concomitant]
     Active Substance: TIZANIDINE HYDROCHLORIDE
  9. ANUSOL HC (UNITED STATES) [Concomitant]
  10. NEURONTIN [Concomitant]
     Active Substance: GABAPENTIN
  11. EPINEPHRINE [Concomitant]
     Active Substance: EPINEPHRINE
  12. DESYREL [Concomitant]
     Active Substance: TRAZODONE HYDROCHLORIDE
  13. ARISTOCORT [Concomitant]
     Active Substance: TRIAMCINOLONE DIACETATE
  14. ZOVIRAX [Concomitant]
     Active Substance: ACYCLOVIR
  15. BREZTRI [Concomitant]
     Active Substance: BUDESONIDE\FORMOTEROL\GLYCOPYRROLATE
  16. ZYRTEC [Concomitant]
     Active Substance: CETIRIZINE HYDROCHLORIDE
  17. BENADRYL [Concomitant]
     Active Substance: DIPHENHYDRAMINE HYDROCHLORIDE
  18. PROTONIX [Concomitant]
     Active Substance: PANTOPRAZOLE SODIUM
  19. MIRENA [Concomitant]
     Active Substance: LEVONORGESTREL
  20. POTASSIUM GLUCONATE [Concomitant]
     Active Substance: POTASSIUM GLUCONATE

REACTIONS (2)
  - Fatigue [Not Recovered/Not Resolved]
  - Sinusitis [Unknown]

NARRATIVE: CASE EVENT DATE: 20220101
